FAERS Safety Report 8133825-X (Version None)
Quarter: 2012Q1

REPORT INFORMATION
  Report Type: 
  Country: None (occurrence: None)
  Receive Date: 20120213
  Receipt Date: 20120213
  Transmission Date: 20120608
  Serious: Yes (Life-Threatening, Hospitalization, Other)
  Sender: FDA-Public Use
  Company Number: None

PATIENT
  Age: 35 Year
  Sex: Female
  Weight: 70.306 kg

DRUGS (1)
  1. MEFLOQUINE HYDROCHLORIDE [Suspect]
     Indication: MALARIA PROPHYLAXIS
     Dosage: 1 PILL
     Route: 048
     Dates: start: 20041105, end: 20041126

REACTIONS (11)
  - BRAIN INJURY [None]
  - VESTIBULAR DISORDER [None]
  - INSOMNIA [None]
  - IMPAIRED WORK ABILITY [None]
  - CONVULSION [None]
  - SUICIDAL IDEATION [None]
  - AFFECTIVE DISORDER [None]
  - DIZZINESS [None]
  - AGGRESSION [None]
  - PSYCHOTIC DISORDER [None]
  - COGNITIVE DISORDER [None]
